FAERS Safety Report 7922067-6 (Version None)
Quarter: 2011Q4

REPORT INFORMATION
  Report Type: 
  Country: None (occurrence: None)
  Receive Date: 20111117
  Receipt Date: 20110406
  Transmission Date: 20120403
  Serious: No
  Sender: FDA-Public Use
  Company Number: US-AMGEN-USASP2011018344

PATIENT
  Age: 59 Year
  Sex: Female

DRUGS (1)
  1. ENBREL [Suspect]
     Indication: RHEUMATOID ARTHRITIS
     Dosage: 50 MG, QWK
     Dates: start: 20101101

REACTIONS (8)
  - INJECTION SITE ERYTHEMA [None]
  - HERPES ZOSTER [None]
  - RHEUMATOID ARTHRITIS [None]
  - GAIT DISTURBANCE [None]
  - RETCHING [None]
  - CARPAL TUNNEL SYNDROME [None]
  - INJECTION SITE HAEMORRHAGE [None]
  - DIARRHOEA [None]
